FAERS Safety Report 5509254-1 (Version None)
Quarter: 2007Q4

REPORT INFORMATION
  Report Type: 
  Country: None (occurrence: None)
  Receive Date: 20071107
  Receipt Date: 20071029
  Transmission Date: 20080405
  Serious: No
  Sender: FDA-Public Use
  Company Number: US-BOEHRINGER INGELHEIM PHARMACEUTICALS, INC.-2007-BP-21107BP

PATIENT
  Sex: Male
  Weight: 61 kg

DRUGS (9)
  1. CATAPRES-TTS-1 [Suspect]
     Indication: HYPERTENSION
     Route: 061
     Dates: start: 20070101
  2. NORVASC [Concomitant]
  3. TERAZOSIN HCL [Concomitant]
  4. GLIPIZIDE [Concomitant]
  5. LABETALOL HCL [Concomitant]
  6. FELODIPINE [Concomitant]
  7. CLONIDINE [Concomitant]
  8. FUROSEMIDE [Concomitant]
  9. ALLOPURINOL [Concomitant]

REACTIONS (2)
  - BLOOD PRESSURE INADEQUATELY CONTROLLED [None]
  - BLOOD PRESSURE INCREASED [None]
